FAERS Safety Report 9793177 (Version 2)
Quarter: 2014Q1

REPORT INFORMATION
  Report Type: Spontaneous
  Country: FR (occurrence: FR)
  Receive Date: 20140102
  Receipt Date: 20140314
  Transmission Date: 20141002
  Serious: Yes (Life-Threatening, Hospitalization)
  Sender: FDA-Public Use
  Company Number: FR-PFIZER INC-2013373680

PATIENT
  Sex: Female
  Weight: 3.15 kg

DRUGS (4)
  1. EFFEXOR LP [Suspect]
     Indication: DEPRESSION
     Dosage: 75 MG, 2X/DAY
     Route: 064
     Dates: start: 201303, end: 20131209
  2. XANAX [Suspect]
     Indication: DEPRESSION
     Dosage: 0.75 MG (THREE 0.25 MG DOSE FORMS), 1X/DAY
     Route: 064
     Dates: start: 201303, end: 20131209
  3. TERCIAN [Suspect]
     Indication: DEPRESSION
     Dosage: 20 GTT, 1X/DAY
     Route: 064
     Dates: start: 201303, end: 20131209
  4. STILNOX [Suspect]
     Indication: DEPRESSION
     Dosage: 10 MG, 1X/DAY
     Route: 064
     Dates: start: 201303, end: 20131209

REACTIONS (4)
  - Maternal exposure during pregnancy [Recovered/Resolved]
  - Pulmonary arterial hypertension [Recovered/Resolved]
  - Dilatation ventricular [Unknown]
  - Patent ductus arteriosus [Unknown]
